FAERS Safety Report 14801639 (Version 1)
Quarter: 2018Q2

REPORT INFORMATION
  Report Type: Spontaneous
  Country: US (occurrence: US)
  Receive Date: 20180424
  Receipt Date: 20180424
  Transmission Date: 20180711
  Serious: No
  Sender: FDA-Public Use
  Company Number: US-OTSUKA-2018_005085

PATIENT
  Age: 15 Year
  Sex: Female

DRUGS (3)
  1. REXULTI [Suspect]
     Active Substance: BREXPIPRAZOLE
     Indication: PSYCHOTIC DISORDER
  2. INVEGA [Concomitant]
     Active Substance: PALIPERIDONE
     Indication: PRODUCT USED FOR UNKNOWN INDICATION
     Dosage: 3 MG, UNK
     Route: 065
  3. REXULTI [Suspect]
     Active Substance: BREXPIPRAZOLE
     Indication: MAJOR DEPRESSION
     Dosage: 2 MG, QD
     Route: 048

REACTIONS (8)
  - Drug administered to patient of inappropriate age [Unknown]
  - Enuresis [Recovered/Resolved]
  - Psychiatric decompensation [Unknown]
  - Blood prolactin increased [Unknown]
  - Incorrect dose administered [Unknown]
  - Breast discharge [Recovered/Resolved]
  - Incontinence [Unknown]
  - Product use in unapproved indication [Unknown]
